FAERS Safety Report 7581945-0 (Version None)
Quarter: 2011Q2

REPORT INFORMATION
  Report Type: 
  Country: None (occurrence: None)
  Receive Date: 20110629
  Receipt Date: 20110627
  Transmission Date: 20111010
  Serious: Yes (Hospitalization)
  Sender: FDA-Public Use
  Company Number: US-BRISTOL-MYERS SQUIBB COMPANY-15710734

PATIENT
  Age: 71 Year
  Sex: Male
  Weight: 111 kg

DRUGS (4)
  1. IPILIMUMAB [Suspect]
     Indication: MALIGNANT MELANOMA
     Dosage: 10MG/KG OVER 90 MINS ON DY 1Q12 WK NO.OF COURSES:3 TOTAL OURSES:3 LAST DOSE:01APR11 CYC:21DY
     Route: 042
     Dates: start: 20110218
  2. GM-CSF [Suspect]
     Indication: MALIGNANT MELANOMA
     Dosage: CYCLE:21DYS 250MCG/DY SQ ON DY 1-14 STOP DT:14APR11 DELAY 7 DAYS NO.OF COU:3 TOTAL OURSE:3
     Dates: start: 20110218
  3. OXYCODONE HCL [Concomitant]
  4. CELEBREX [Concomitant]

REACTIONS (4)
  - ARTHRITIS [None]
  - HYPOALBUMINAEMIA [None]
  - ARTHRALGIA [None]
  - BLOOD THYROID STIMULATING HORMONE DECREASED [None]
